FAERS Safety Report 19423115 (Version 1)
Quarter: 2021Q2

REPORT INFORMATION
  Report Type: Spontaneous
  Country: CH (occurrence: CH)
  Receive Date: 20210616
  Receipt Date: 20210616
  Transmission Date: 20210717
  Serious: Yes (Hospitalization, Other)
  Sender: FDA-Public Use
  Company Number: CH-ASTRAZENECA-2021A507000

PATIENT
  Age: 73 Year
  Sex: Female

DRUGS (6)
  1. EZETIMIBUM [Suspect]
     Active Substance: EZETIMIBE
     Route: 048
     Dates: start: 201908, end: 20210305
  2. METFORMIN AXAPHARMA [Concomitant]
  3. CRESTASTATIN [Suspect]
     Active Substance: ROSUVASTATIN CALCIUM
     Route: 048
     Dates: start: 2001, end: 20210305
  4. AMLODIPIN AXAPHARM [Suspect]
     Active Substance: AMLODIPINE BESYLATE
     Route: 048
     Dates: start: 20201117
  5. CANSARTAN [Concomitant]
     Active Substance: CANDESARTAN CILEXETIL
     Route: 048
  6. ASPIRIN CARDIO [Concomitant]
     Active Substance: ASPIRIN
     Route: 048

REACTIONS (1)
  - Tubulointerstitial nephritis [Recovering/Resolving]

NARRATIVE: CASE EVENT DATE: 20210305
